FAERS Safety Report 5747506-0 (Version None)
Quarter: 2008Q2

REPORT INFORMATION
  Report Type: 
  Country: None (occurrence: None)
  Receive Date: 20080523
  Receipt Date: 20080512
  Transmission Date: 20081010
  Serious: Yes (Death, Hospitalization, Other)
  Sender: FDA-Public Use
  Company Number: US-ROCHE-552633

PATIENT
  Sex: Female
  Weight: 41.3 kg

DRUGS (5)
  1. XELODA [Suspect]
     Indication: DRUG USE FOR UNKNOWN INDICATION
     Dosage: START DATE REPORTED: AFTER 12/ 10
     Route: 065
  2. MEGACE [Concomitant]
  3. MORPHINE [Concomitant]
  4. ZOFRAN [Concomitant]
  5. PHENERGAN [Concomitant]

REACTIONS (10)
  - COLON CANCER [None]
  - DYSPNOEA [None]
  - LETHARGY [None]
  - METASTASES TO BONE [None]
  - METASTASES TO LIVER [None]
  - METASTASES TO LUNG [None]
  - PAIN [None]
  - PLEURAL EFFUSION [None]
  - PNEUMOTHORAX [None]
  - TACHYCARDIA [None]
